FAERS Safety Report 14014828 (Version 9)
Quarter: 2024Q3

REPORT INFORMATION
  Report Type: Spontaneous
  Country: US (occurrence: US)
  Receive Date: 20170927
  Receipt Date: 20240726
  Transmission Date: 20241017
  Serious: Yes (Hospitalization, Other)
  Sender: PFIZER
  Company Number: US-PFIZER INC-2017409332

PATIENT
  Age: 48 Year
  Sex: Female
  Weight: 77 kg

DRUGS (4)
  1. ELELYSO [Suspect]
     Active Substance: TALIGLUCERASE ALFA
     Indication: Gaucher^s disease
     Dosage: UNK, Q3 WEEKS
     Dates: start: 20170826, end: 2017
  2. ELELYSO [Suspect]
     Active Substance: TALIGLUCERASE ALFA
     Dosage: 1400 IU, (OVER 60-120 MINUTES EVERY 3 WEEKS)
     Route: 042
     Dates: start: 2017
  3. ELELYSO [Suspect]
     Active Substance: TALIGLUCERASE ALFA
     Dosage: 1700 EVERY 3 WEEKS
     Route: 042
  4. ELELYSO [Suspect]
     Active Substance: TALIGLUCERASE ALFA
     Dosage: UNK

REACTIONS (13)
  - Nephrolithiasis [Recovered/Resolved]
  - Pain [Recovering/Resolving]
  - Road traffic accident [Unknown]
  - Head injury [Unknown]
  - Mental impairment [Unknown]
  - Kidney enlargement [Unknown]
  - Cough [Unknown]
  - Amnesia [Unknown]
  - Malaise [Unknown]
  - Off label use [Unknown]
  - Product use issue [Unknown]
  - Intentional product misuse [Unknown]
  - Product dose omission issue [Unknown]

NARRATIVE: CASE EVENT DATE: 20170101
